FAERS Safety Report 15000915 (Version 1)
Quarter: 2018Q2

REPORT INFORMATION
  Report Type: Spontaneous
  Country: CN (occurrence: CN)
  Receive Date: 20180612
  Receipt Date: 20180612
  Transmission Date: 20180711
  Serious: Yes (Other)
  Sender: FDA-Public Use
  Company Number: CN-JNJFOC-20180605896

PATIENT

DRUGS (1)
  1. INFLIXIMAB, RECOMBINANT [Suspect]
     Active Substance: INFLIXIMAB
     Indication: CROHN^S DISEASE
     Dosage: FREQUENCY WEEKS 0, 2, AND 6
     Route: 042

REACTIONS (7)
  - Infection [Unknown]
  - Serum sickness-like reaction [Unknown]
  - Tuberculosis [Unknown]
  - Drug ineffective [Unknown]
  - Infusion related reaction [Unknown]
  - Hepatitis [Unknown]
  - Upper respiratory tract infection [Unknown]
